FAERS Safety Report 8187243 (Version 4)
Quarter: 2013Q1

REPORT INFORMATION
  Report Type: Spontaneous
  Country: US (occurrence: US)
  Receive Date: 20111018
  Receipt Date: 20130329
  Transmission Date: 20140127
  Serious: Yes (Hospitalization)
  Sender: FDA-Public Use
  Company Number: US-ASTRAZENECA-2011SE31260

PATIENT
  Age: 23 Year
  Sex: Female

DRUGS (1)
  1. SYMBICORT PMDI [Suspect]
     Indication: ASTHMA
     Dosage: 80/4.5 MCG, FREQUENCY UNKNOWN
     Route: 055

REACTIONS (5)
  - Asthma [Unknown]
  - Respiratory disorder [Unknown]
  - Malaise [Unknown]
  - Road traffic accident [Unknown]
  - Drug dose omission [Unknown]
